FAERS Safety Report 26137768 (Version 1)
Quarter: 2025Q4

REPORT INFORMATION
  Report Type: Spontaneous
  Country: US (occurrence: US)
  Receive Date: 20251209
  Receipt Date: 20251209
  Transmission Date: 20260118
  Serious: No
  Sender: AMGEN
  Company Number: US-AMGEN-USASP2025238844

PATIENT
  Age: 59 Year
  Sex: Female

DRUGS (1)
  1. ENBREL [Suspect]
     Active Substance: ETANERCEPT
     Indication: Rheumatoid arthritis
     Dosage: 40 MILLIGRAM, QWK
     Route: 065
     Dates: start: 20251101, end: 20251108

REACTIONS (3)
  - Injection site bruising [Recovered/Resolved]
  - Cheilitis [Recovered/Resolved]
  - Off label use [Unknown]

NARRATIVE: CASE EVENT DATE: 20251101
